FAERS Safety Report 8932475 (Version 1)
Quarter: 2012Q4

REPORT INFORMATION
  Report Type: Spontaneous
  Country: DE (occurrence: None)
  Receive Date: 20121120
  Receipt Date: 20121120
  Transmission Date: 20130627
  Serious: Yes (Hospitalization, Disabling, Other)
  Sender: FDA-Public Use
  Company Number: 2012P1063756

PATIENT
  Age: 65 Year
  Sex: Male

DRUGS (1)
  1. CORTISONE [Suspect]

REACTIONS (5)
  - Paraparesis [None]
  - Urinary tract disorder [None]
  - Spinal cord compression [None]
  - Myelopathy [None]
  - Epidural lipomatosis [None]
